FAERS Safety Report 6702168-0 (Version None)
Quarter: 2010Q2

REPORT INFORMATION
  Report Type: 
  Country: None (occurrence: None)
  Receive Date: 20100429
  Receipt Date: 20100426
  Transmission Date: 20101027
  Serious: Yes (Death, Hospitalization, Other)
  Sender: FDA-Public Use
  Company Number: GB-ROCHE-688590

PATIENT
  Sex: Male

DRUGS (11)
  1. XELODA [Suspect]
     Indication: RECTAL CANCER METASTATIC
     Route: 048
     Dates: start: 20090728, end: 20090808
  2. WARFARIN SODIUM [Concomitant]
     Dosage: 2MG/3MG ON ALTERNATE DAYS
  3. INDAPAMIDE [Concomitant]
  4. DEXAMETHASONE TAB [Concomitant]
     Route: 042
  5. DEXAMETHASONE TAB [Concomitant]
     Route: 042
  6. OXALIPLATIN [Concomitant]
     Indication: RECTAL CANCER METASTATIC
     Route: 042
     Dates: start: 20090728
  7. ONDANSETRON [Concomitant]
     Route: 042
     Dates: start: 20090728
  8. METOCLOPRAMIDE HYDROCHLORIDE [Concomitant]
     Dosage: 10-20 MG THREE TIMES A DAY AS NEEDED
  9. CORSODYL MOUTHWASH [Concomitant]
     Dosage: STARTED POST CHEMO
     Dates: start: 20090728
  10. DIFFLAM ORAL RINSE [Concomitant]
     Dosage: STARTED POST CHEMO
     Dates: start: 20090728
  11. PERINDOPRIL [Concomitant]

REACTIONS (13)
  - ABDOMINAL PAIN [None]
  - ATRIAL FIBRILLATION [None]
  - COLORECTAL CANCER [None]
  - DEHYDRATION [None]
  - DIARRHOEA [None]
  - DISEASE PROGRESSION [None]
  - DRUG TOXICITY [None]
  - HAEMOGLOBIN DECREASED [None]
  - HYPOTENSION [None]
  - METABOLIC DISORDER [None]
  - NEUTROPENIA [None]
  - PAIN [None]
  - PLATELET COUNT INCREASED [None]
